FAERS Safety Report 5694350-9 (Version None)
Quarter: 2008Q2

REPORT INFORMATION
  Report Type: 
  Country: None (occurrence: None)
  Receive Date: 20080402
  Receipt Date: 20080317
  Transmission Date: 20081010
  Serious: Yes (Hospitalization)
  Sender: FDA-Public Use
  Company Number: DSA_31635_2008

PATIENT
  Age: 82 Year
  Sex: Female

DRUGS (2)
  1. ENALAPRIL MALEATE [Suspect]
     Indication: HYPERTENSION
     Dosage: (20 MG QD ORAL)
     Route: 048
     Dates: start: 20080201, end: 20080227
  2. DILATREND (DILATREND) 25 MG (NOT SPECIFIED) [Suspect]
     Indication: HYPERTENSION
     Dosage: (25 MG QD)
     Dates: start: 20080201, end: 20080227

REACTIONS (4)
  - ABDOMINAL PAIN [None]
  - DYSPNOEA [None]
  - HYPOTENSION [None]
  - VOMITING [None]
